FAERS Safety Report 9519187 (Version 1)
Quarter: 2013Q3

REPORT INFORMATION
  Report Type: Report from Study
  Country: US (occurrence: US)
  Receive Date: 20130912
  Receipt Date: 20130912
  Transmission Date: 20140515
  Serious: Yes (Other)
  Sender: FDA-Public Use
  Company Number: US-JNJFOC-20130901970

PATIENT
  Age: 42 Year
  Sex: Female
  Weight: 52.16 kg

DRUGS (7)
  1. REMICADE [Suspect]
     Indication: COLITIS ULCERATIVE
     Route: 042
     Dates: start: 201210, end: 201210
  2. BENADRYL [Concomitant]
     Route: 065
     Dates: start: 201210, end: 201210
  3. ADVAIR [Concomitant]
     Indication: ASTHMA
     Route: 065
  4. LEVOTHROID [Concomitant]
     Indication: HYPOTHYROIDISM
     Route: 065
  5. POTASSIUM [Concomitant]
     Indication: ELECTROLYTE SUBSTITUTION THERAPY
     Route: 065
     Dates: start: 2010
  6. VITAMIN D [Concomitant]
     Indication: ELECTROLYTE SUBSTITUTION THERAPY
     Route: 065
     Dates: start: 2010
  7. CORTICOSTEROIDS NOS [Concomitant]
     Route: 065
     Dates: start: 201210, end: 201210

REACTIONS (2)
  - Cardiac failure congestive [Recovered/Resolved]
  - Bundle branch block right [Recovered/Resolved]
